FAERS Safety Report 14997973 (Version 2)
Quarter: 2018Q4

REPORT INFORMATION
  Report Type: Report from Study
  Country: BR (occurrence: BR)
  Receive Date: 20180611
  Receipt Date: 20181017
  Transmission Date: 20190204
  Serious: Yes (Other)
  Sender: FDA-Public Use
  Company Number: BR-BRISTOL-MYERS SQUIBB COMPANY-BMS-2018-051058

PATIENT
  Sex: Female

DRUGS (2)
  1. ABATACEPT [Suspect]
     Active Substance: ABATACEPT
     Indication: RHEUMATOID ARTHRITIS
     Dosage: 500 MG, QMO
     Route: 042
  2. VIMOVO [Concomitant]
     Active Substance: ESOMEPRAZOLE MAGNESIUM\NAPROXEN
     Indication: PRODUCT USED FOR UNKNOWN INDICATION
     Dosage: UNK
     Route: 065

REACTIONS (8)
  - Immunodeficiency [Unknown]
  - Liver disorder [Unknown]
  - Peripheral swelling [Unknown]
  - Influenza [Unknown]
  - Arthralgia [Unknown]
  - Drug ineffective [Unknown]
  - Pain in extremity [Unknown]
  - Tooth disorder [Unknown]
